FAERS Safety Report 7183718-X (Version None)
Quarter: 2010Q4

REPORT INFORMATION
  Report Type: 
  Country: None (occurrence: None)
  Receive Date: 20101222
  Receipt Date: 20101214
  Transmission Date: 20110411
  Serious: Yes (Hospitalization)
  Sender: FDA-Public Use
  Company Number: VE-GENZYME-CERZ-1001651

PATIENT

DRUGS (1)
  1. CEREZYME [Suspect]
     Indication: GAUCHER'S DISEASE
     Dosage: 2000 U, UNK
     Route: 042
     Dates: start: 20071029

REACTIONS (2)
  - DENGUE FEVER [None]
  - SALMONELLOSIS [None]
